FAERS Safety Report 18853089 (Version 1)
Quarter: 2021Q1

REPORT INFORMATION
  Report Type: Other
  Country: US (occurrence: US)
  Receive Date: 20210205
  Receipt Date: 20210205
  Transmission Date: 20210420
  Serious: Yes (Other)
  Sender: FDA-Public Use
  Company Number: US-ROCHE-2760141

PATIENT
  Sex: Female

DRUGS (8)
  1. CELEBREX [Concomitant]
     Active Substance: CELECOXIB
     Route: 048
  2. ACETAMINOPHEN. [Concomitant]
     Active Substance: ACETAMINOPHEN
     Indication: PREMEDICATION
     Route: 048
  3. METHYLPREDNISOLONE. [Concomitant]
     Active Substance: METHYLPREDNISOLONE
     Indication: PREMEDICATION
     Route: 042
  4. BACLOFEN. [Concomitant]
     Active Substance: BACLOFEN
     Route: 048
  5. OCREVUS [Suspect]
     Active Substance: OCRELIZUMAB
     Indication: RELAPSING MULTIPLE SCLEROSIS
     Dosage: 300 MG ONCE IN 2 WEEKS, THEN 600 MG ONCE IN 6 MONTHS?ON 14/AUG/2018, 14/SEP/2018, 31/JAN/2019, 31/JU
     Route: 042
     Dates: start: 20180731
  6. MELATONIN [Concomitant]
     Active Substance: MELATONIN
     Dosage: AT NIGHT
     Route: 048
  7. AMPYRA [Concomitant]
     Active Substance: DALFAMPRIDINE
     Route: 048
  8. DIPHENHYDRAMINE. [Concomitant]
     Active Substance: DIPHENHYDRAMINE
     Indication: PREMEDICATION
     Route: 042

REACTIONS (8)
  - Fatigue [Unknown]
  - Vision blurred [Unknown]
  - Off label use [Unknown]
  - Intentional product misuse [Unknown]
  - Fall [Unknown]
  - Multiple sclerosis [Unknown]
  - Myalgia [Unknown]
  - Asthenia [Unknown]
